FAERS Safety Report 22225801 (Version 4)
Quarter: 2023Q2

REPORT INFORMATION
  Report Type: Spontaneous
  Country: PT (occurrence: PT)
  Receive Date: 20230418
  Receipt Date: 20230503
  Transmission Date: 20230722
  Serious: Yes (Other)
  Sender: FDA-Public Use
  Company Number: PT-MYLANLABS-2023M1036825

PATIENT
  Age: 81 Year
  Sex: Male

DRUGS (4)
  1. SPORANOX [Suspect]
     Active Substance: ITRACONAZOLE
     Indication: Bronchopulmonary aspergillosis allergic
     Dosage: 20 MILLIGRAM, TWO TIMES A DAY
     Route: 065
  2. SPORANOX [Suspect]
     Active Substance: ITRACONAZOLE
     Dosage: BID
     Route: 065
  3. PREDNISOLONE [Suspect]
     Active Substance: PREDNISOLONE
     Indication: Bronchopulmonary aspergillosis allergic
     Dosage: 0.5 MILLIMOLE PER KILOGRAM, DAILY
     Route: 065
  4. FLUTICASONE PROPIONATE\SALMETEROL XINAFOATE [Suspect]
     Active Substance: FLUTICASONE PROPIONATE\SALMETEROL XINAFOATE
     Indication: Product used for unknown indication
     Dosage: 25 / 125 UG
     Route: 065

REACTIONS (3)
  - Cholestasis [Unknown]
  - Bronchopulmonary aspergillosis allergic [Unknown]
  - Treatment noncompliance [Unknown]
